FAERS Safety Report 18382288 (Version 1)
Quarter: 2020Q4

REPORT INFORMATION
  Report Type: Spontaneous
  Country: US (occurrence: US)
  Receive Date: 20201014
  Receipt Date: 20201014
  Transmission Date: 20210114
  Serious: No
  Sender: FDA-Public Use
  Company Number: US-SA-2020SA286460

PATIENT

DRUGS (3)
  1. JEVTANA [Suspect]
     Active Substance: CABAZITAXEL
     Dosage: DRUG STRUCTURE DOSAGE :   50 MG  DRUG INTERVAL DOSAGE :   UNKNOWN
     Dates: start: 20200625
  2. JEVTANA [Suspect]
     Active Substance: CABAZITAXEL
     Indication: BASAL CELL CARCINOMA
     Dosage: DRUG STRUCTURE DOSAGE :   50 MG  DRUG INTERVAL DOSAGE :   UNKNOWN
     Dates: start: 20200625
  3. NA [Concomitant]
     Active Substance: SODIUM
     Dosage: UNK

REACTIONS (2)
  - Intercepted product preparation error [Unknown]
  - Oxygen consumption decreased [Unknown]
